FAERS Safety Report 10747366 (Version 1)
Quarter: 2015Q1

REPORT INFORMATION
  Report Type: Spontaneous
  Country: US (occurrence: None)
  Receive Date: 20150128
  Receipt Date: 20150128
  Transmission Date: 20150721
  Serious: Yes (Death, Hospitalization)
  Sender: FDA-Public Use
  Company Number: None

PATIENT
  Age: 2 Year
  Sex: Female
  Weight: 14 kg

DRUGS (7)
  1. DOXORUBICIN HYDROCHLORIDE. [Suspect]
     Active Substance: DOXORUBICIN HYDROCHLORIDE
     Dates: end: 20131121
  2. THIOGUANINE [Suspect]
     Active Substance: THIOGUANINE
     Dates: end: 20131218
  3. CYCLOPHOSPHAMIDE. [Suspect]
     Active Substance: CYCLOPHOSPHAMIDE
     Dates: end: 20131205
  4. CYTARABINE. [Suspect]
     Active Substance: CYTARABINE
     Dates: end: 20131215
  5. VINCRISTINE SULFATE. [Suspect]
     Active Substance: VINCRISTINE SULFATE
     Dates: end: 20131226
  6. METHOTREXATE [Suspect]
     Active Substance: METHOTREXATE
     Route: 037
     Dates: end: 20131213
  7. ONCASPAR [Suspect]
     Active Substance: PEGASPARGASE
     Dates: end: 20131219

REACTIONS (6)
  - Drug effect decreased [None]
  - Respiratory failure [None]
  - Labile blood pressure [None]
  - Fluid overload [None]
  - Capillary leak syndrome [None]
  - Viral infection [None]

NARRATIVE: CASE EVENT DATE: 20140216
